FAERS Safety Report 7762884-9 (Version None)
Quarter: 2011Q3

REPORT INFORMATION
  Report Type: 
  Country: None (occurrence: None)
  Receive Date: 20110920
  Receipt Date: 20110916
  Transmission Date: 20111222
  Serious: Yes (Death, Other)
  Sender: FDA-Public Use
  Company Number: JP-B.I. PHARMACEUTICALS,INC./RIDGEFIELD-2011-BP-22270NB

PATIENT
  Age: 78 Year

DRUGS (1)
  1. PRADAXA [Suspect]
     Indication: ATRIAL FIBRILLATION
     Dosage: 220 MG
     Route: 048
     Dates: start: 20110801, end: 20110901

REACTIONS (4)
  - SEPSIS [None]
  - INTESTINAL OBSTRUCTION [None]
  - MELAENA [None]
  - ACTIVATED PARTIAL THROMBOPLASTIN TIME PROLONGED [None]
